FAERS Safety Report 7238206 (Version 8)
Quarter: 2013Q3

REPORT INFORMATION
  Report Type: Spontaneous
  Country: US (occurrence: US)
  Receive Date: 20100106
  Receipt Date: 20130822
  Transmission Date: 20140515
  Serious: Yes (Hospitalization, Other)
  Sender: FDA-Public Use
  Company Number: US-BAYER-201010052NA

PATIENT
  Age: 41 Year
  Sex: Female
  Weight: 70 kg

DRUGS (5)
  1. YASMIN [Suspect]
     Indication: ORAL CONTRACEPTION
     Route: 048
  2. CLOPIDOGREL BISULFATE [Concomitant]
     Dosage: UNK
     Dates: start: 200808, end: 200811
  3. ASPIRIN [Concomitant]
     Dosage: UNK
     Dates: start: 200808, end: 200811
  4. MERIDIA [Concomitant]
     Indication: WEIGHT DECREASED
  5. NORVASC [Concomitant]

REACTIONS (22)
  - Cerebrovascular accident [None]
  - Thrombosis [None]
  - Hemiparesis [None]
  - Facial paresis [None]
  - Hypoaesthesia [None]
  - Dysarthria [None]
  - Hypoaesthesia [None]
  - Pain in jaw [None]
  - Headache [None]
  - Horner^s syndrome [None]
  - Visual field defect [None]
  - Eye pain [None]
  - Pupils unequal [None]
  - Eyelid ptosis [None]
  - Carotid artery dissection [None]
  - Headache [None]
  - Migraine [None]
  - Photopsia [None]
  - Hypoaesthesia [None]
  - Headache [None]
  - Cerebral infarction [None]
  - Transient ischaemic attack [None]
